FAERS Safety Report 15125432 (Version 1)
Quarter: 2018Q3

REPORT INFORMATION
  Report Type: Report from Study
  Country: DE (occurrence: DE)
  Receive Date: 20180710
  Receipt Date: 20180710
  Transmission Date: 20181010
  Serious: Yes (Other)
  Sender: FDA-Public Use
  Company Number: DE-PFIZER INC-2018273020

PATIENT
  Age: 65 Year
  Sex: Male
  Weight: 100 kg

DRUGS (3)
  1. DOCETAXEL. [Suspect]
     Active Substance: DOCETAXEL
     Dosage: 135 MG, CYCLIC
     Route: 042
     Dates: start: 20151127, end: 20151127
  2. DOCETAXEL. [Suspect]
     Active Substance: DOCETAXEL
     Dosage: 135 MG, CYCLIC
     Route: 042
     Dates: start: 20150520, end: 20150520
  3. DOCETAXEL. [Suspect]
     Active Substance: DOCETAXEL
     Indication: PROSTATE CANCER METASTATIC
     Dosage: 135 MG,CYCLIC
     Route: 042
     Dates: start: 20150430, end: 20150430

REACTIONS (4)
  - Diarrhoea [Recovered/Resolved]
  - Nausea [Recovered/Resolved]
  - Ileostomy [Unknown]
  - Anal incontinence [Unknown]

NARRATIVE: CASE EVENT DATE: 20150503
